FAERS Safety Report 18435348 (Version 1)
Quarter: 2020Q4

REPORT INFORMATION
  Report Type: Spontaneous
  Country: US (occurrence: US)
  Receive Date: 20201027
  Receipt Date: 20201027
  Transmission Date: 20210114
  Serious: Yes (Other)
  Sender: FDA-Public Use
  Company Number: None

PATIENT
  Age: 39 Year
  Sex: Female
  Weight: 100.8 kg

DRUGS (6)
  1. SYNTHROID [Concomitant]
     Active Substance: LEVOTHYROXINE SODIUM
  2. DEPO-PROVERA [Suspect]
     Active Substance: MEDROXYPROGESTERONE ACETATE
     Indication: CONTRACEPTION
     Dates: start: 20200921, end: 20201027
  3. LIOTHYRONINE [Concomitant]
     Active Substance: LIOTHYRONINE
  4. WELLBUTRIN [Concomitant]
     Active Substance: BUPROPION HYDROCHLORIDE
  5. MULTIVITAMIN GUMMIES [Concomitant]
  6. VIATIV CALCIUM CHEWS [Concomitant]

REACTIONS (3)
  - Breast pain [None]
  - Haemorrhage [None]
  - Muscle spasms [None]

NARRATIVE: CASE EVENT DATE: 20201013
